FAERS Safety Report 12990687 (Version 2)
Quarter: 2016Q4

REPORT INFORMATION
  Report Type: Report from Study
  Country: BR (occurrence: BR)
  Receive Date: 20161201
  Receipt Date: 20161206
  Transmission Date: 20170207
  Serious: Yes (Hospitalization, Other)
  Sender: FDA-Public Use
  Company Number: BR-JNJFOC-20161127157

PATIENT
  Age: 45 Year
  Sex: Female
  Weight: 71.5 kg

DRUGS (3)
  1. REMICADE [Suspect]
     Active Substance: INFLIXIMAB
     Indication: CROHN^S DISEASE
     Route: 042
     Dates: start: 201109
  2. REMICADE [Suspect]
     Active Substance: INFLIXIMAB
     Indication: CROHN^S DISEASE
     Route: 042
     Dates: start: 201607
  3. REMICADE [Suspect]
     Active Substance: INFLIXIMAB
     Indication: CROHN^S DISEASE
     Route: 042

REACTIONS (10)
  - Bone loss [Recovered/Resolved with Sequelae]
  - Asthenia [Unknown]
  - Tooth loss [Not Recovered/Not Resolved]
  - Diarrhoea [Unknown]
  - Urinary tract infection bacterial [Recovering/Resolving]
  - Skin cancer [Recovered/Resolved]
  - Wound [Recovered/Resolved]
  - Oral bacterial infection [Recovered/Resolved with Sequelae]
  - Drug prescribing error [Unknown]
  - Off label use [Unknown]

NARRATIVE: CASE EVENT DATE: 201109
